FAERS Safety Report 21220487 (Version 3)
Quarter: 2022Q3

REPORT INFORMATION
  Report Type: Spontaneous
  Country: FR (occurrence: FR)
  Receive Date: 20220817
  Receipt Date: 20220829
  Transmission Date: 20221026
  Serious: Yes (Death, Life-Threatening, Other)
  Sender: FDA-Public Use
  Company Number: FR-PFM-2022-05897

PATIENT
  Age: 51 Year
  Sex: Female

DRUGS (4)
  1. CARBOPLATIN [Suspect]
     Active Substance: CARBOPLATIN
     Indication: Nasal sinus cancer
     Dosage: UNK
     Route: 065
  2. PACLITAXEL [Suspect]
     Active Substance: PACLITAXEL
     Indication: Nasal sinus cancer
     Dosage: UNK
     Route: 065
  3. VINORELBINE [Suspect]
     Active Substance: VINORELBINE TARTRATE
     Indication: Nasal sinus cancer
     Dosage: UNK, 6 MONTHS
     Route: 065
  4. TAZEMETOSTAT [Suspect]
     Active Substance: TAZEMETOSTAT
     Indication: Nasal sinus cancer
     Dosage: 800 MILLIGRAM, TWO TIMES A DAY (800 MG, BID (2/DAY)
     Route: 065

REACTIONS (3)
  - Death [Fatal]
  - Anaemia [Unknown]
  - Drug ineffective [Unknown]
